FAERS Safety Report 14670238 (Version 2)
Quarter: 2018Q2

REPORT INFORMATION
  Report Type: Spontaneous
  Country: DE (occurrence: DE)
  Receive Date: 20180322
  Receipt Date: 20180611
  Transmission Date: 20180711
  Serious: Yes (Other)
  Sender: FDA-Public Use
  Company Number: DE-ARALEZ PHARMACEUTICALS R+D INC.-2018-ARA-000666

PATIENT
  Age: 1 Day
  Sex: Male
  Weight: 2 kg

DRUGS (5)
  1. L-THYROXIN [Concomitant]
     Active Substance: LEVOTHYROXINE SODIUM
     Indication: FOETAL EXPOSURE DURING PREGNANCY
     Dosage: 175 ?G, QD
     Route: 064
     Dates: start: 20170306, end: 20171217
  2. PROPESS [Concomitant]
     Active Substance: DINOPROSTONE
     Indication: FOETAL EXPOSURE DURING PREGNANCY
     Dosage: UNK
     Route: 064
     Dates: start: 20171217, end: 20171217
  3. METOPROLOL SUCCINATE. [Suspect]
     Active Substance: METOPROLOL SUCCINATE
     Dosage: 95 MG, QD
     Route: 064
     Dates: start: 20171217
  4. FEMIBION                           /01597501/ [Concomitant]
     Active Substance: CALCIUM PHOSPHATE, DIBASIC, ANHYDROUS\FERROUS SUCCINATE\MAGNESIUM HYDROXIDE
     Indication: FOETAL EXPOSURE DURING PREGNANCY
     Dosage: UNK
     Route: 064
     Dates: start: 20170510, end: 20171217
  5. METOPROLOL SUCCINATE. [Suspect]
     Active Substance: METOPROLOL SUCCINATE
     Indication: FOETAL EXPOSURE DURING PREGNANCY
     Dosage: 95 MG, QD
     Route: 064
     Dates: start: 20170306

REACTIONS (1)
  - Small for dates baby [Recovering/Resolving]

NARRATIVE: CASE EVENT DATE: 20171217
